FAERS Safety Report 18684548 (Version 1)
Quarter: 2020Q4

REPORT INFORMATION
  Report Type: Spontaneous
  Country: IT (occurrence: IT)
  Receive Date: 20201230
  Receipt Date: 20201230
  Transmission Date: 20210114
  Serious: Yes (Other)
  Sender: FDA-Public Use
  Company Number: IT-INCYTE CORPORATION-2020IN012921

PATIENT

DRUGS (1)
  1. JAKAVI [Suspect]
     Active Substance: RUXOLITINIB
     Indication: MYELOFIBROSIS
     Dosage: UNK (5X2)
     Route: 065

REACTIONS (5)
  - Second primary malignancy [Unknown]
  - Anaemia [Unknown]
  - Anal cancer [Unknown]
  - Metastases to lymph nodes [Unknown]
  - Heteroplasia [Unknown]
